FAERS Safety Report 8227228-7 (Version None)
Quarter: 2012Q1

REPORT INFORMATION
  Report Type: 
  Country: None (occurrence: None)
  Receive Date: 20120322
  Receipt Date: 20120313
  Transmission Date: 20120608
  Serious: Yes (Other)
  Sender: FDA-Public Use
  Company Number: US-JNJFOC-20120308038

PATIENT
  Sex: Male
  Weight: 72.58 kg

DRUGS (19)
  1. FLEXERIL [Suspect]
     Indication: SCOLIOSIS
     Route: 048
     Dates: start: 20120224
  2. VICODIN [Suspect]
     Indication: PRODUCT USED FOR UNKNOWN INDICATION
     Route: 065
  3. RISPERDAL CONSTA [Suspect]
     Route: 030
     Dates: start: 20050101, end: 20110101
  4. RISPERDAL CONSTA [Suspect]
     Route: 030
     Dates: start: 20050101
  5. RISPERDAL CONSTA [Suspect]
     Route: 030
     Dates: start: 20050101, end: 20110101
  6. RISPERDAL CONSTA [Suspect]
     Route: 030
     Dates: start: 20111101, end: 20111201
  7. RISPERDAL CONSTA [Suspect]
     Route: 030
     Dates: end: 20110101
  8. RISPERDAL CONSTA [Suspect]
     Route: 030
     Dates: start: 20050101
  9. RISPERDAL CONSTA [Suspect]
     Indication: BIPOLAR I DISORDER
     Route: 030
  10. RISPERDAL CONSTA [Suspect]
     Route: 030
     Dates: start: 20111201, end: 20120201
  11. COGENTIN [Suspect]
     Indication: ADVERSE DRUG REACTION
     Route: 065
     Dates: start: 20110101, end: 20110101
  12. INVEGA SUSTENNA [Concomitant]
     Indication: SCHIZOPHRENIA
     Route: 030
     Dates: start: 20110101, end: 20110101
  13. RISPERDAL CONSTA [Suspect]
     Route: 030
     Dates: end: 20110101
  14. RISPERDAL CONSTA [Suspect]
     Route: 030
     Dates: start: 20111101, end: 20111201
  15. RISPERDAL CONSTA [Suspect]
     Route: 030
     Dates: start: 20111201, end: 20120201
  16. BENADRYL [Suspect]
     Indication: ADVERSE DRUG REACTION
     Route: 065
     Dates: start: 20110101, end: 20110101
  17. INVEGA SUSTENNA [Concomitant]
     Indication: BIPOLAR DISORDER
     Route: 030
     Dates: start: 20110101, end: 20110101
  18. RISPERDAL CONSTA [Suspect]
     Indication: SCHIZOPHRENIA
     Route: 030
  19. NEURONTIN [Suspect]
     Indication: NEUROPATHY PERIPHERAL
     Route: 065

REACTIONS (4)
  - SCHIZOPHRENIA [None]
  - PARALYSIS [None]
  - MUSCLE SPASMS [None]
  - NEUROPATHY PERIPHERAL [None]
